FAERS Safety Report 20084881 (Version 1)
Quarter: 2021Q4

REPORT INFORMATION
  Report Type: Spontaneous
  Country: GB (occurrence: GB)
  Receive Date: 20211118
  Receipt Date: 20211118
  Transmission Date: 20220303
  Serious: Yes (Hospitalization)
  Sender: FDA-Public Use
  Company Number: None

PATIENT
  Age: 62 Year
  Sex: Male

DRUGS (9)
  1. TERBINAFINE HYDROCHLORIDE [Suspect]
     Active Substance: TERBINAFINE HYDROCHLORIDE
     Indication: Fungal skin infection
     Dosage: 250 MG, QD (250MG DAILY)
     Route: 048
     Dates: start: 20211008
  2. CYCLIZINE [Concomitant]
     Active Substance: CYCLIZINE
     Indication: Ill-defined disorder
     Dosage: UNK
     Route: 065
  3. CYCLIZINE [Concomitant]
     Active Substance: CYCLIZINE
     Dosage: UNK
     Route: 065
  4. DIORALYTE [Concomitant]
     Active Substance: CITRIC ACID MONOHYDRATE\DEXTROSE\POTASSIUM CATION\SODIUM CHLORIDE
     Indication: Ill-defined disorder
     Dosage: UNK
     Route: 065
  5. DIORALYTE [Concomitant]
     Active Substance: CITRIC ACID MONOHYDRATE\DEXTROSE\POTASSIUM CATION\SODIUM CHLORIDE
     Dosage: UNK
     Route: 065
  6. DOXYCYCLINE [Concomitant]
     Active Substance: DOXYCYCLINE
     Indication: Ill-defined disorder
     Dosage: UNK
     Route: 065
  7. DOXYCYCLINE [Concomitant]
     Active Substance: DOXYCYCLINE
     Dosage: UNK
     Route: 065
  8. OMEPRAZOLE [Concomitant]
     Active Substance: OMEPRAZOLE
     Indication: Ill-defined disorder
     Dosage: UNK
     Route: 065
  9. OMEPRAZOLE [Concomitant]
     Active Substance: OMEPRAZOLE
     Dosage: UNK
     Route: 065

REACTIONS (1)
  - Drug-induced liver injury [Not Recovered/Not Resolved]
